FAERS Safety Report 9269804 (Version 1)
Quarter: 2013Q2

REPORT INFORMATION
  Report Type: Report from Study
  Country: CA (occurrence: CA)
  Receive Date: 20130503
  Receipt Date: 20130503
  Transmission Date: 20140414
  Serious: Yes (Other)
  Sender: FDA-Public Use
  Company Number: CA-JNJFOC-20130416627

PATIENT
  Sex: Male
  Weight: 51.5 kg

DRUGS (10)
  1. REMICADE [Suspect]
     Indication: CROHN^S DISEASE
     Dosage: 51 INFUSION
     Route: 042
  2. NOVASONE [Concomitant]
     Route: 065
  3. PANTOLOC [Concomitant]
     Route: 065
  4. FOLIC ACID [Concomitant]
     Route: 065
  5. ATENOLOL [Concomitant]
     Route: 065
  6. CELEBREX [Concomitant]
     Route: 065
  7. HYDROCHLOROTHIAZIDE [Concomitant]
     Route: 065
  8. SALOFALK ENEMA [Concomitant]
     Route: 065
  9. CIPRO [Concomitant]
     Route: 065
  10. ALL OTHER THERAPEUTIC DRUGS [Concomitant]
     Route: 065

REACTIONS (2)
  - Intestinal ulcer [Unknown]
  - Gastrointestinal inflammation [Unknown]
